FAERS Safety Report 22032372 (Version 2)
Quarter: 2023Q1

REPORT INFORMATION
  Report Type: Report from Study
  Country: AR (occurrence: AR)
  Receive Date: 20230224
  Receipt Date: 20230331
  Transmission Date: 20230417
  Serious: Yes (Hospitalization, Other)
  Sender: FDA-Public Use
  Company Number: AR-002147023-NVSC2022AR233834

PATIENT
  Age: 50 Year
  Sex: Female

DRUGS (1)
  1. KISQALI [Suspect]
     Active Substance: RIBOCICLIB
     Indication: Breast cancer metastatic
     Dosage: 600 MG, QD (THROUGH THE MOUTH)
     Route: 048
     Dates: start: 20221011

REACTIONS (17)
  - Ear infection [Unknown]
  - Ear pain [Unknown]
  - Tooth infection [Unknown]
  - Haemorrhage [Unknown]
  - Osteomyelitis [Unknown]
  - Chills [Unknown]
  - Gingivitis [Unknown]
  - Gallbladder disorder [Unknown]
  - Malaise [Unknown]
  - Tremor [Unknown]
  - Migraine [Unknown]
  - Somnolence [Unknown]
  - Abdominal pain upper [Unknown]
  - Pyrexia [Unknown]
  - Diarrhoea [Unknown]
  - Alopecia [Unknown]
  - Dry skin [Unknown]

NARRATIVE: CASE EVENT DATE: 20221011
